FAERS Safety Report 5356790-7 (Version None)
Quarter: 2007Q2

REPORT INFORMATION
  Report Type: 
  Country: None (occurrence: None)
  Receive Date: 20070530
  Receipt Date: 20061128
  Transmission Date: 20071010
  Serious: Yes (Hospitalization)
  Sender: FDA-Public Use
  Company Number: US200608002820

PATIENT
  Age: 31 Year
  Sex: Female
  Weight: 70.7 kg

DRUGS (6)
  1. ZYPREXA [Suspect]
     Indication: ANXIETY
     Dates: start: 19980101, end: 19990101
  2. QUETIAPINE [Concomitant]
  3. RISPERIDONE [Concomitant]
  4. VALPROATE SODIUM [Concomitant]
  5. CITALOPRAM HYDROBROMIDE [Concomitant]
  6. PAROXETINE [Concomitant]

REACTIONS (2)
  - PANCREATITIS [None]
  - WEIGHT DECREASED [None]
